FAERS Safety Report 8600071-2 (Version None)
Quarter: 2012Q3

REPORT INFORMATION
  Report Type: 
  Country: None (occurrence: None)
  Receive Date: 20120816
  Receipt Date: 20120814
  Transmission Date: 20120928
  Serious: Yes (Hospitalization)
  Sender: FDA-Public Use
  Company Number: US-TEVA-353885USA

PATIENT
  Sex: Female

DRUGS (1)
  1. COPAXONE [Suspect]
     Indication: MULTIPLE SCLEROSIS
     Route: 058
     Dates: start: 20120307

REACTIONS (5)
  - ELECTROCARDIOGRAM [None]
  - PAIN IN EXTREMITY [None]
  - CHEST PAIN [None]
  - VIRAL INFECTION [None]
  - GASTROINTESTINAL INFECTION [None]
